FAERS Safety Report 7979924-4 (Version None)
Quarter: 2011Q4

REPORT INFORMATION
  Report Type: 
  Country: None (occurrence: None)
  Receive Date: 20111208
  Receipt Date: 20111129
  Transmission Date: 20120403
  Serious: Yes (Other)
  Sender: FDA-Public Use
  Company Number: 2011SP055728

PATIENT
  Age: 50 Year
  Sex: Female

DRUGS (5)
  1. ZOLPIDEM [Concomitant]
  2. DOMINAL [Concomitant]
  3. SEROQUEL XR [Concomitant]
  4. MELPERON [Concomitant]
  5. MIRTAZAPINE [Suspect]
     Indication: PRODUCT USED FOR UNKNOWN INDICATION
     Dosage: 30 MG, PO
     Route: 048
     Dates: start: 20110516, end: 20110519

REACTIONS (1)
  - RESTLESS LEGS SYNDROME [None]
